FAERS Safety Report 15689317 (Version 1)
Quarter: 2018Q4

REPORT INFORMATION
  Report Type: Spontaneous
  Country: CA (occurrence: CA)
  Receive Date: 20181205
  Receipt Date: 20181205
  Transmission Date: 20190205
  Serious: Yes (Other)
  Sender: FDA-Public Use
  Company Number: CA-TEVA-2018-CA-982132

PATIENT
  Age: 61 Year
  Sex: Male

DRUGS (4)
  1. MOXIFLOXACIN. [Suspect]
     Active Substance: MOXIFLOXACIN
     Indication: TUBULOINTERSTITIAL NEPHRITIS
     Dosage: 400 MILLIGRAM DAILY;
     Route: 048
  2. ETHAMBUTOL [Concomitant]
     Active Substance: ETHAMBUTOL HYDROCHLORIDE
     Indication: TUBULOINTERSTITIAL NEPHRITIS
     Dosage: 15 MG/KG DAILY;
     Route: 048
  3. ISONIAZID. [Concomitant]
     Active Substance: ISONIAZID
     Indication: TUBULOINTERSTITIAL NEPHRITIS
     Dosage: 5 MG/KG DAILY;
     Route: 048
  4. RIFAMPIN. [Concomitant]
     Active Substance: RIFAMPIN
     Indication: TUBULOINTERSTITIAL NEPHRITIS
     Dosage: 10 MG/KG DAILY;
     Route: 048

REACTIONS (11)
  - Product use in unapproved indication [Unknown]
  - Weight decreased [Unknown]
  - Fatigue [Unknown]
  - Malaise [Unknown]
  - Blood pressure decreased [Unknown]
  - Mobility decreased [Unknown]
  - Off label use [Unknown]
  - Back pain [Unknown]
  - Loss of personal independence in daily activities [Unknown]
  - Cachexia [Unknown]
  - Spinal pain [Unknown]
